FAERS Safety Report 14137060 (Version 1)
Quarter: 2017Q4

REPORT INFORMATION
  Report Type: Report from Study
  Country: US (occurrence: US)
  Receive Date: 20171027
  Receipt Date: 20171027
  Transmission Date: 20180321
  Serious: Yes (Hospitalization)
  Sender: FDA-Public Use
  Company Number: US-BAYER-2017-200606

PATIENT
  Sex: Male

DRUGS (1)
  1. STIVARGA [Suspect]
     Active Substance: REGORAFENIB
     Indication: PLASMA CELL MYELOMA
     Dosage: 160 MG, QD
     Route: 048
     Dates: start: 20160917

REACTIONS (3)
  - Product use in unapproved indication [None]
  - Off label use [None]
  - Gastric disorder [None]
